FAERS Safety Report 6093662-7 (Version None)
Quarter: 2009Q1

REPORT INFORMATION
  Report Type: 
  Country: None (occurrence: None)
  Receive Date: 20090223
  Receipt Date: 20090223
  Transmission Date: 20090719
  Serious: Yes (Other)
  Sender: FDA-Public Use
  Company Number: None

PATIENT
  Age: 74 Year
  Sex: Male
  Weight: 74.8435 kg

DRUGS (1)
  1. CIPROFLOXACIN HCL [Suspect]
     Indication: PROSTATITIS
     Dosage: ONE TABLET TWICE PER DAY PO
     Route: 048
     Dates: start: 20081101, end: 20081201

REACTIONS (2)
  - DIZZINESS [None]
  - TENDON RUPTURE [None]
